FAERS Safety Report 22624641 (Version 1)
Quarter: 2023Q2

REPORT INFORMATION
  Report Type: Spontaneous
  Country: US (occurrence: None)
  Receive Date: 20230616
  Receipt Date: 20230616
  Transmission Date: 20230721
  Serious: No
  Sender: FDA-Public Use
  Company Number: None

PATIENT
  Sex: Female

DRUGS (1)
  1. RASUVO [Suspect]
     Active Substance: METHOTREXATE SODIUM
     Indication: Rheumatoid arthritis
     Dosage: 12.5MG WEEKLY UNDER THE SKIN
     Route: 058
     Dates: start: 202210

REACTIONS (6)
  - Headache [None]
  - Photophobia [None]
  - Nausea [None]
  - Insomnia [None]
  - Drug ineffective [None]
  - Arthralgia [None]
